FAERS Safety Report 9022667 (Version 1)
Quarter: 2013Q1

REPORT INFORMATION
  Report Type: Spontaneous
  Country: US (occurrence: US)
  Receive Date: 20130120
  Receipt Date: 20130120
  Transmission Date: 20140127
  Serious: Yes (Death, Hospitalization, Other)
  Sender: FDA-Public Use
  Company Number: US-UCBSA-075339

PATIENT
  Age: 19 Year
  Sex: Male

DRUGS (5)
  1. ACETAMINOPHEN\HYDROCODONE [Suspect]
     Route: 048
  2. CLONAZEPAM [Suspect]
     Route: 048
  3. ZOLPIDEM [Suspect]
     Route: 048
  4. BUTALBITAL [Suspect]
     Route: 048
  5. TRAMADOL [Suspect]
     Route: 048

REACTIONS (2)
  - Cardio-respiratory arrest [Fatal]
  - Completed suicide [Fatal]
